FAERS Safety Report 7083428-3 (Version None)
Quarter: 2010Q4

REPORT INFORMATION
  Report Type: 
  Country: None (occurrence: None)
  Receive Date: 20101104
  Receipt Date: 20101102
  Transmission Date: 20110411
  Serious: Yes (Other)
  Sender: FDA-Public Use
  Company Number: A0890434A

PATIENT
  Age: 36 Year
  Sex: Female

DRUGS (1)
  1. PAXIL [Suspect]
     Route: 065
     Dates: start: 19980101

REACTIONS (2)
  - DRUG EXPOSURE DURING PREGNANCY [None]
  - ECTOPIC PREGNANCY [None]
